FAERS Safety Report 25876962 (Version 2)
Quarter: 2025Q4

REPORT INFORMATION
  Report Type: Report from Study
  Country: US (occurrence: US)
  Receive Date: 20251003
  Receipt Date: 20251009
  Transmission Date: 20260118
  Serious: Yes (Death, Other)
  Sender: OTSUKA
  Company Number: US-MMM-Otsuka-EUZPTISK

PATIENT
  Age: 47 Year
  Sex: Male

DRUGS (2)
  1. TOLVAPTAN [Suspect]
     Active Substance: TOLVAPTAN
     Indication: Congenital cystic kidney disease
     Dosage: 90 MG, QD (UPON WAKING)
  2. TOLVAPTAN [Suspect]
     Active Substance: TOLVAPTAN
     Dosage: 30 MG, QD (8 HOURS LATER)

REACTIONS (1)
  - Death [Fatal]

NARRATIVE: CASE EVENT DATE: 20250112
